FAERS Safety Report 13281306 (Version 1)
Quarter: 2017Q1

REPORT INFORMATION
  Report Type: Spontaneous
  Country: US (occurrence: US)
  Receive Date: 20170301
  Receipt Date: 20170301
  Transmission Date: 20170428
  Serious: No
  Sender: FDA-Public Use
  Company Number: US-INSYS THERAPEUTICS, INC-INS201608-000458

PATIENT
  Sex: Female

DRUGS (2)
  1. SUBSYS [Suspect]
     Active Substance: FENTANYL
     Indication: BREAKTHROUGH PAIN
     Route: 060
     Dates: start: 20151216
  2. OXYCODONE [Concomitant]
     Active Substance: OXYCODONE

REACTIONS (1)
  - Headache [Unknown]
